FAERS Safety Report 9149112 (Version 1)
Quarter: 2013Q1

REPORT INFORMATION
  Report Type: Spontaneous
  Country: DK (occurrence: None)
  Receive Date: 20130131
  Receipt Date: 20130131
  Transmission Date: 20140127
  Serious: Yes (Other)
  Sender: FDA-Public Use
  Company Number: 2013MA000788

PATIENT
  Age: 41 Year
  Sex: Male

DRUGS (4)
  1. FLUOXETINE ORAL SOLUTION USP, 20MG/5ML (ALPHARMA) (FLUOXETINE) [Suspect]
     Indication: AFFECTIVE DISORDER
  2. ANTABUSE (DISULFIRAM) [Suspect]
     Indication: PRODUCT USED FOR UNKNOWN INDICATION
  3. LAMOTRIGINE (LAMOTRIGINE) [Suspect]
     Indication: AFFECTIVE DISORDER
  4. NALTREXONE (NALTREXONE) [Suspect]
     Indication: PRODUCT USED FOR UNKNOWN INDICATION

REACTIONS (3)
  - Sedation [None]
  - Fatigue [None]
  - Hypersomnia [None]
